FAERS Safety Report 21905378 (Version 4)
Quarter: 2023Q1

REPORT INFORMATION
  Report Type: Report from Study
  Country: GB (occurrence: GB)
  Receive Date: 20230124
  Receipt Date: 20230316
  Transmission Date: 20230418
  Serious: Yes (Other)
  Sender: FDA-Public Use
  Company Number: GB-TAKEDA-2023TUS007778

PATIENT
  Age: 19 Year
  Sex: Male

DRUGS (8)
  1. BRIGATINIB [Suspect]
     Active Substance: BRIGATINIB
     Indication: Anaplastic large cell lymphoma T- and null-cell types recurrent
     Dosage: 90 MILLIGRAM
     Route: 048
     Dates: start: 20221229
  2. BRIGATINIB [Suspect]
     Active Substance: BRIGATINIB
     Dosage: 180 MILLIGRAM
     Route: 048
     Dates: start: 20230104, end: 20230111
  3. BRIGATINIB [Suspect]
     Active Substance: BRIGATINIB
     Dosage: 60 MILLIGRAM
     Route: 048
     Dates: start: 20230118
  4. BRIGATINIB [Suspect]
     Active Substance: BRIGATINIB
     Dosage: 180 MILLIGRAM
     Route: 048
     Dates: start: 20230201
  5. ADCETRIS [Suspect]
     Active Substance: BRENTUXIMAB VEDOTIN
     Indication: Anaplastic large cell lymphoma T- and null-cell types recurrent
     Dosage: UNK
     Route: 042
     Dates: start: 202112, end: 20230201
  6. CYCLOPHOSPHAMIDE [Suspect]
     Active Substance: CYCLOPHOSPHAMIDE
     Indication: Anaplastic large cell lymphoma T- and null-cell types recurrent
     Dosage: UNK
     Route: 042
     Dates: start: 202112, end: 20230201
  7. DOXORUBICIN [Suspect]
     Active Substance: DOXORUBICIN
     Indication: Anaplastic large cell lymphoma T- and null-cell types recurrent
     Dosage: UNK
     Route: 042
     Dates: start: 202112, end: 20230201
  8. PREDNISOLONE [Suspect]
     Active Substance: PREDNISOLONE
     Indication: Anaplastic large cell lymphoma T- and null-cell types recurrent
     Dosage: UNK
     Route: 048
     Dates: start: 202112, end: 20230201

REACTIONS (2)
  - Alanine aminotransferase increased [Recovered/Resolved]
  - Anaplastic large-cell lymphoma [Not Recovered/Not Resolved]
